FAERS Safety Report 23198452 (Version 4)
Quarter: 2024Q1

REPORT INFORMATION
  Report Type: Spontaneous
  Country: DE (occurrence: DE)
  Receive Date: 20231117
  Receipt Date: 20240102
  Transmission Date: 20240410
  Serious: Yes (Life-Threatening, Hospitalization, Other)
  Sender: FDA-Public Use
  Company Number: DE-BRISTOL-MYERS SQUIBB COMPANY-2023-165933

PATIENT
  Age: 62 Year
  Sex: Male

DRUGS (7)
  1. OPDIVO [Suspect]
     Active Substance: NIVOLUMAB
     Indication: Nodular melanoma
     Route: 042
     Dates: start: 20230525, end: 20230525
  2. OPDIVO [Suspect]
     Active Substance: NIVOLUMAB
     Dates: start: 20230710, end: 20230731
  3. IPILIMUMAB [Suspect]
     Active Substance: IPILIMUMAB
     Indication: Nodular melanoma
     Dates: start: 20230710, end: 20230823
  4. ELIQUIS [Concomitant]
     Active Substance: APIXABAN
     Indication: Product used for unknown indication
     Dates: start: 2019
  5. BISOPROLOL [Concomitant]
     Active Substance: BISOPROLOL\BISOPROLOL FUMARATE
     Indication: Product used for unknown indication
     Dates: start: 2002
  6. PREDNISOLONE [Concomitant]
     Active Substance: PREDNISOLONE
     Indication: Hypophysitis
     Dosage: TREATMENT INCLUDED PREDNISOLONE 330 MILLIGRAM (MG) INTRAVENOUS (IV) ONCE DAILY (QD).
  7. PREDNISOLONE [Concomitant]
     Active Substance: PREDNISOLONE
     Dosage: TREATMENT INCLUDED PREDNISOLONE 330 MILLIGRAM (MG) INTRAVENOUS (IV) ONCE DAILY (QD).
     Route: 042
     Dates: start: 20230830

REACTIONS (2)
  - Myocarditis [Recovered/Resolved]
  - Off label use [Unknown]

NARRATIVE: CASE EVENT DATE: 20230830
